FAERS Safety Report 8454737-8 (Version None)
Quarter: 2012Q2

REPORT INFORMATION
  Report Type: 
  Country: None (occurrence: None)
  Receive Date: 20120614
  Receipt Date: 20120530
  Transmission Date: 20120825
  Serious: Yes (Hospitalization, Other)
  Sender: FDA-Public Use
  Company Number: 2012-293

PATIENT
  Age: 62 Year
  Sex: Male
  Weight: 65 kg

DRUGS (15)
  1. PERINDOPRIL ERBUMINE [Concomitant]
  2. OXYCONTIN [Concomitant]
  3. AVODART [Concomitant]
  4. TRANXENE [Concomitant]
  5. CYMBALTA [Concomitant]
  6. PRIALT [Suspect]
     Dosage: SEE IMAGE
     Route: 037
     Dates: start: 20120101
  7. PRIALT [Suspect]
     Dosage: SEE IMAGE
     Route: 037
     Dates: start: 20120301
  8. PRIALT [Suspect]
     Dosage: SEE IMAGE
     Route: 037
     Dates: start: 20120301, end: 20120301
  9. PRIALT [Suspect]
     Dosage: SEE IMAGE
     Route: 037
     Dates: end: 20120507
  10. PRIALT [Suspect]
     Dosage: SEE IMAGE
     Route: 037
     Dates: start: 20120507, end: 20120514
  11. AMITRIPTYLINE HCL [Concomitant]
  12. LYRICA [Concomitant]
  13. ASPIRIN [Concomitant]
  14. GLUCOPHAGE [Concomitant]
  15. MORPHINE SULFATE [Suspect]
     Dosage: 0.03 MG, ONCE/HOUR, INTRATHECAL
     Route: 037

REACTIONS (6)
  - ORAL PAIN [None]
  - WEIGHT DECREASED [None]
  - BALANCE DISORDER [None]
  - DYSPHAGIA [None]
  - NYSTAGMUS [None]
  - ALLODYNIA [None]
